FAERS Safety Report 8310649-1 (Version None)
Quarter: 2012Q2

REPORT INFORMATION
  Report Type: 
  Country: None (occurrence: None)
  Receive Date: 20120425
  Receipt Date: 20120417
  Transmission Date: 20120825
  Serious: No
  Sender: FDA-Public Use
  Company Number: US-BAYER-2012-038870

PATIENT
  Age: 45 Year
  Sex: Male
  Weight: 127 kg

DRUGS (6)
  1. PROTONIX [Concomitant]
  2. TRAMADOL HCL [Concomitant]
  3. IC BUTALB- ACETAMIN CAFF [Concomitant]
  4. ALEVE (CAPLET) [Suspect]
     Indication: PAIN
     Dosage: 2 DF, BID
     Route: 048
     Dates: start: 20080101
  5. ALEVE (CAPLET) [Suspect]
     Dosage: UNK, QD
     Dates: start: 20060101
  6. SINGULAIR [Concomitant]

REACTIONS (1)
  - ABDOMINAL PAIN UPPER [None]
